FAERS Safety Report 5598467-9 (Version None)
Quarter: 2008Q1

REPORT INFORMATION
  Report Type: 
  Country: None (occurrence: None)
  Receive Date: 20080122
  Receipt Date: 20080111
  Transmission Date: 20080703
  Serious: Yes (Life-Threatening, Hospitalization)
  Sender: FDA-Public Use
  Company Number: US-JNJFOC-20071105424

PATIENT
  Sex: Male

DRUGS (2)
  1. ULTRAM [Suspect]
     Indication: VACTERL SYNDROME
     Route: 065
  2. ALEVE [Suspect]
     Indication: BACK PAIN
     Dosage: 440MG TWICE DAILY
     Route: 048

REACTIONS (4)
  - DEHYDRATION [None]
  - GASTRIC ULCER HAEMORRHAGE [None]
  - HYPOVITAMINOSIS [None]
  - VOMITING [None]
